FAERS Safety Report 9289175 (Version 1)
Quarter: 2013Q2

REPORT INFORMATION
  Report Type: Spontaneous
  Country: GB (occurrence: GB)
  Receive Date: 20130508
  Receipt Date: 20130508
  Transmission Date: 20140414
  Serious: Yes (Other)
  Sender: FDA-Public Use
  Company Number: GB-009507513-1305GBR001509

PATIENT
  Age: 73 Year
  Sex: Female
  Weight: 75 kg

DRUGS (5)
  1. SINEMET [Suspect]
     Indication: PARKINSON^S DISEASE
     Dosage: UNK
     Route: 048
     Dates: start: 20130411
  2. BENDROFLUMETHIAZIDE [Concomitant]
  3. IBUPROFEN [Concomitant]
  4. RASAGILINE [Concomitant]
  5. LEVOTHYROXINE SODIUM [Concomitant]

REACTIONS (3)
  - Psoriasis [Not Recovered/Not Resolved]
  - Erythema [Unknown]
  - Skin plaque [Unknown]
